FAERS Safety Report 10083215 (Version 1)
Quarter: 2014Q2

REPORT INFORMATION
  Report Type: Spontaneous
  Country: FR (occurrence: FR)
  Receive Date: 20140417
  Receipt Date: 20140417
  Transmission Date: 20141212
  Serious: Yes (Hospitalization)
  Sender: FDA-Public Use
  Company Number: FR-BRISTOL-MYERS SQUIBB COMPANY-20621389

PATIENT
  Age: 62 Year
  Sex: Male

DRUGS (2)
  1. ERBITUX SOLN FOR INF [Suspect]
     Indication: LARYNGEAL CANCER
     Route: 042
     Dates: start: 20140130, end: 20140207
  2. TAXOTERE [Suspect]
     Indication: LARYNGEAL CANCER
     Route: 042
     Dates: start: 20140130, end: 20140130

REACTIONS (1)
  - Agranulocytosis [Recovered/Resolved]
